FAERS Safety Report 8357674-2 (Version None)
Quarter: 2012Q2

REPORT INFORMATION
  Report Type: 
  Country: None (occurrence: None)
  Receive Date: 20120511
  Receipt Date: 20120417
  Transmission Date: 20120825
  Serious: Yes (Other)
  Sender: FDA-Public Use
  Company Number: DSA_56391_2012

PATIENT
  Age: 47 Year
  Sex: Male

DRUGS (1)
  1. BUPROPION HCL [Suspect]
     Indication: PANIC DISORDER
     Dosage: (300 MG QD), (150 MG QD), (150 MG QD)

REACTIONS (20)
  - PANIC DISORDER [None]
  - EMOTIONAL DISTRESS [None]
  - MEMORY IMPAIRMENT [None]
  - TREMOR [None]
  - FEAR [None]
  - AGORAPHOBIA [None]
  - DIZZINESS [None]
  - COGNITIVE DISORDER [None]
  - HEART RATE INCREASED [None]
  - AGITATION [None]
  - QUALITY OF LIFE DECREASED [None]
  - COORDINATION ABNORMAL [None]
  - CHEST PAIN [None]
  - TENSION [None]
  - MOTOR DYSFUNCTION [None]
  - TOXICITY TO VARIOUS AGENTS [None]
  - SOCIAL PHOBIA [None]
  - DISTURBANCE IN ATTENTION [None]
  - DYSPNOEA [None]
  - FEELING ABNORMAL [None]
